FAERS Safety Report 25872733 (Version 1)
Quarter: 2025Q4

REPORT INFORMATION
  Report Type: Spontaneous
  Country: RU (occurrence: RU)
  Receive Date: 20251002
  Receipt Date: 20251002
  Transmission Date: 20260118
  Serious: Yes (Life-Threatening, Other)
  Sender: MYLAN
  Company Number: RU-MYLANLABS-2025M1083683

PATIENT
  Age: 54 Year
  Sex: Female

DRUGS (18)
  1. ARIXTRA [Suspect]
     Active Substance: FONDAPARINUX SODIUM
     Indication: Acute coronary syndrome
     Dosage: UNK
  2. TICAGRELOR [Suspect]
     Active Substance: TICAGRELOR
     Indication: Acute coronary syndrome
     Dosage: UNK
  3. ASPIRIN [Suspect]
     Active Substance: ASPIRIN
     Indication: Acute coronary syndrome
     Dosage: UNK
  4. LISINOPRIL [Suspect]
     Active Substance: LISINOPRIL
     Indication: Acute coronary syndrome
     Dosage: UNK
  5. ATORVASTATIN [Suspect]
     Active Substance: ATORVASTATIN
     Indication: Acute coronary syndrome
     Dosage: UNK
  6. OMEPRAZOLE [Suspect]
     Active Substance: OMEPRAZOLE
     Indication: Acute coronary syndrome
     Dosage: UNK
  7. AMLODIPINE [Suspect]
     Active Substance: AMLODIPINE BESYLATE
     Indication: Acute coronary syndrome
     Dosage: UNK
  8. METOPROLOL [Suspect]
     Active Substance: METOPROLOL
     Indication: Acute coronary syndrome
     Dosage: UNK
  9. PHOSPHOCREATINE SODIUM [Suspect]
     Active Substance: PHOSPHOCREATINE SODIUM
     Indication: Acute coronary syndrome
     Dosage: UNK
  10. TRIMETAZIDINE [Suspect]
     Active Substance: TRIMETAZIDINE
     Indication: Acute coronary syndrome
     Dosage: UNK
  11. CORDARONE [Suspect]
     Active Substance: AMIODARONE HYDROCHLORIDE
     Indication: Acute coronary syndrome
     Dosage: UNK
  12. EPLERENONE [Suspect]
     Active Substance: EPLERENONE
     Indication: Acute coronary syndrome
     Dosage: UNK
  13. EMOXYPINE SUCCINATE [Suspect]
     Active Substance: EMOXYPINE SUCCINATE
     Indication: Acute coronary syndrome
     Dosage: UNK
  14. INOSINE\NIACINAMIDE\RIBOFLAVIN\SUCCINIC ACID [Suspect]
     Active Substance: INOSINE\NIACINAMIDE\RIBOFLAVIN\SUCCINIC ACID
     Indication: Acute coronary syndrome
     Dosage: UNK
  15. ACETYLCYSTEINE [Suspect]
     Active Substance: ACETYLCYSTEINE
     Indication: Acute coronary syndrome
     Dosage: UNK
  16. FENOTEROL HYDROBROMIDE\IPRATROPIUM BROMIDE [Suspect]
     Active Substance: FENOTEROL HYDROBROMIDE\IPRATROPIUM BROMIDE
     Indication: Acute coronary syndrome
     Dosage: UNK
  17. AMPICILLIN SODIUM\SULBACTAM SODIUM [Suspect]
     Active Substance: AMPICILLIN SODIUM\SULBACTAM SODIUM
     Indication: Acute coronary syndrome
     Dosage: UNK
  18. FERROUS SULFATE [Suspect]
     Active Substance: FERROUS SULFATE
     Indication: Acute coronary syndrome
     Dosage: UNK

REACTIONS (6)
  - Atrioventricular block first degree [Recovered/Resolved]
  - Atrioventricular block second degree [Recovered/Resolved]
  - Sinus arrhythmia [Recovered/Resolved]
  - Ventricular tachycardia [Recovered/Resolved]
  - Supraventricular extrasystoles [Recovered/Resolved]
  - Sleep apnoea syndrome [Recovered/Resolved]

NARRATIVE: CASE EVENT DATE: 20231220
